FAERS Safety Report 6478563 (Version 2)
Quarter: 2012Q4

REPORT INFORMATION
  Report Type: 
  Country: JP (occurrence: JP)
  Receive Date: 20071130
  Receipt Date: 20121112
  Transmission Date: 20130627
  Serious: Yes (Hospitalization)
  Sender: FDA-Public Use
  Company Number: JP-ELI_LILLY_AND_COMPANY-JP200711000668

PATIENT
  Age: 68 Year
  Sex: Male
  Weight: 61 kg

DRUGS (6)
  1. GEMZAR [Suspect]
     Indication: BILIARY CANCER METASTATIC
     Dosage: 1700 mg, other
     Route: 042
     Dates: start: 20070731, end: 20071009
  2. MAGLAX [Concomitant]
     Dosage: 2 D/F, daily (1/D)
     Route: 048
     Dates: start: 20060309, end: 20061012
  3. LENDORMIN [Concomitant]
     Dosage: 1 D/F, daily (1/D)
     Route: 048
     Dates: start: 20060309, end: 20070925
  4. GASTER [Concomitant]
     Dosage: 20 mg, daily (1/D)
     Route: 048
     Dates: start: 20060824, end: 20070925
  5. DECADRON /00016001/ [Concomitant]
     Dosage: 16 mg, other
     Route: 042
     Dates: start: 20070731, end: 20071009
  6. KYTRIL [Concomitant]
     Dosage: 1 D/F, daily (1/D)
     Route: 042
     Dates: start: 20070731, end: 20071009

REACTIONS (6)
  - Interstitial lung disease [Recovering/Resolving]
  - Cholangitis [Unknown]
  - Pleural effusion [Unknown]
  - Urine output decreased [Unknown]
  - Pyrexia [Unknown]
  - Decreased appetite [Unknown]
